FAERS Safety Report 15041952 (Version 1)
Quarter: 2018Q2

REPORT INFORMATION
  Report Type: Report from Study
  Country: US (occurrence: US)
  Receive Date: 20180621
  Receipt Date: 20180621
  Transmission Date: 20180711
  Serious: Yes (Other)
  Sender: FDA-Public Use
  Company Number: US-ROCHE-2141890

PATIENT
  Sex: Female
  Weight: 74.91 kg

DRUGS (4)
  1. NUTROPIN AQ [Suspect]
     Active Substance: SOMATROPIN
     Indication: GROWTH HORMONE DEFICIENCY
     Route: 058
  2. NUTROPIN AQ [Suspect]
     Active Substance: SOMATROPIN
     Indication: HYPOPITUITARISM
  3. TOUJEO [Concomitant]
     Active Substance: INSULIN GLARGINE
  4. LEVEMIR [Concomitant]
     Active Substance: INSULIN DETEMIR

REACTIONS (7)
  - Pain in extremity [Unknown]
  - Histoplasmosis [Unknown]
  - Neuropathy peripheral [Unknown]
  - Dysaesthesia [Unknown]
  - Menorrhagia [Unknown]
  - Feeling abnormal [Unknown]
  - Fatigue [Unknown]
